FAERS Safety Report 21258962 (Version 1)
Quarter: 2022Q3

REPORT INFORMATION
  Report Type: Report from Study
  Country: EG (occurrence: EG)
  Receive Date: 20220826
  Receipt Date: 20220826
  Transmission Date: 20221026
  Serious: Yes (Death, Hospitalization)
  Sender: FDA-Public Use
  Company Number: EG-NOVARTISPH-NVSC2022EG191161

PATIENT
  Age: 56 Year
  Sex: Female

DRUGS (1)
  1. PIQRAY [Suspect]
     Active Substance: ALPELISIB
     Indication: Breast cancer metastatic
     Dosage: 150 MG (ONE DAY 2 TABLET PIQRAY 150MG PER DAY AND ONE DAY ONE  TABLET PIQRAY150 MG PER DAY)
     Route: 065
     Dates: start: 20220213, end: 20220802

REACTIONS (5)
  - Pulmonary oedema [Fatal]
  - Diabetes mellitus [Recovering/Resolving]
  - Acidosis [Recovering/Resolving]
  - Vomiting [Recovering/Resolving]
  - Decreased appetite [Recovering/Resolving]

NARRATIVE: CASE EVENT DATE: 20220213
